FAERS Safety Report 10097069 (Version 2)
Quarter: 2014Q2

REPORT INFORMATION
  Report Type: Spontaneous
  Country: US (occurrence: US)
  Receive Date: 20140422
  Receipt Date: 20140422
  Transmission Date: 20141212
  Serious: No
  Sender: FDA-Public Use
  Company Number: US-GILEAD-2012-0065237

PATIENT
  Age: 35 Year
  Sex: Female

DRUGS (2)
  1. LETAIRIS [Suspect]
     Indication: COR PULMONALE CHRONIC
     Dosage: 5 MG, QD
     Route: 048
     Dates: start: 20070809
  2. REMODULIN [Suspect]

REACTIONS (7)
  - Chest pain [Unknown]
  - Wheezing [Unknown]
  - Malaise [Unknown]
  - Diarrhoea [Unknown]
  - Infusion site erythema [Unknown]
  - Fluid retention [Unknown]
  - Hypervolaemia [Unknown]
